FAERS Safety Report 20195054 (Version 1)
Quarter: 2021Q4

REPORT INFORMATION
  Report Type: Spontaneous
  Country: US (occurrence: None)
  Receive Date: 20211216
  Receipt Date: 20211216
  Transmission Date: 20220303
  Serious: Yes (Hospitalization)
  Sender: FDA-Public Use
  Company Number: None

PATIENT
  Sex: Female

DRUGS (8)
  1. ORILISSA [Suspect]
     Active Substance: ELAGOLIX SODIUM
     Indication: Pelvic pain
     Dosage: FREQUENCY : DAILY;?
     Route: 048
     Dates: start: 20211126
  2. ORILISSA [Suspect]
     Active Substance: ELAGOLIX SODIUM
     Dosage: FREQUENCY : DAILY;?
     Route: 048
  3. CODEINE POW PHOSPHAT [Concomitant]
  4. ERYTHROMYCIN POW [Concomitant]
  5. IBUPROFEN TAB [Concomitant]
  6. MORPHINE SULFATE [Concomitant]
     Active Substance: MORPHINE SULFATE
  7. PREDNISONE [Concomitant]
     Active Substance: PREDNISONE
  8. SMZ/TMP DS TAB [Concomitant]

REACTIONS (2)
  - Diarrhoea [None]
  - Therapy interrupted [None]
